FAERS Safety Report 10344414 (Version 1)
Quarter: 2014Q3

REPORT INFORMATION
  Report Type: Spontaneous
  Country: US (occurrence: None)
  Receive Date: 20140725
  Receipt Date: 20140725
  Transmission Date: 20150326
  Serious: Yes (Death)
  Sender: FDA-Public Use
  Company Number: None

PATIENT
  Age: 60 Year
  Sex: Female

DRUGS (1)
  1. LOMUSTINE. [Suspect]
     Active Substance: LOMUSTINE

REACTIONS (3)
  - Neutropenia [None]
  - Accidental overdose [None]
  - Thrombocytopenia [None]

NARRATIVE: CASE EVENT DATE: 2014
